FAERS Safety Report 17420279 (Version 2)
Quarter: 2020Q3

REPORT INFORMATION
  Report Type: Spontaneous
  Country: FR (occurrence: FR)
  Receive Date: 20200214
  Receipt Date: 20200707
  Transmission Date: 20201102
  Serious: Yes (Death, Hospitalization, Other)
  Sender: FDA-Public Use
  Company Number: FR-REGENERON PHARMACEUTICALS, INC.-2020-19485

PATIENT

DRUGS (2)
  1. LIBTAYO [Suspect]
     Active Substance: CEMIPLIMAB-RWLC
     Indication: SQUAMOUS CELL CARCINOMA
     Dosage: UNK UNK, QCY
     Dates: start: 20191218, end: 20191218
  2. LIBTAYO [Suspect]
     Active Substance: CEMIPLIMAB-RWLC
     Indication: METASTASES TO SPINE
     Dosage: UNK UNK, QCY
     Route: 065
     Dates: start: 20200115, end: 20200115

REACTIONS (17)
  - Myasthenia gravis [Fatal]
  - Weight decreased [Fatal]
  - Dysphagia [Fatal]
  - Immune-mediated myositis [Fatal]
  - Bedridden [Fatal]
  - Gait disturbance [Fatal]
  - Chest pain [Fatal]
  - Cardiomyopathy [Fatal]
  - General physical health deterioration [Fatal]
  - Asthenia [Fatal]
  - Rhabdomyolysis [Fatal]
  - Fatigue [Fatal]
  - Decreased vibratory sense [Fatal]
  - Polyneuropathy [Fatal]
  - Decreased appetite [Fatal]
  - Myalgia [Fatal]
  - Diplopia [Fatal]

NARRATIVE: CASE EVENT DATE: 20200121
